FAERS Safety Report 23320226 (Version 1)
Quarter: 2023Q4

REPORT INFORMATION
  Report Type: Spontaneous
  Country: US (occurrence: None)
  Receive Date: 20231219
  Receipt Date: 20231219
  Transmission Date: 20240109
  Serious: No
  Sender: FDA-Public Use
  Company Number: None

PATIENT
  Age: 55 Year
  Sex: Female
  Weight: 92.08 kg

DRUGS (1)
  1. HUMIRA [Suspect]
     Active Substance: ADALIMUMAB
     Indication: Rheumatoid arthritis
     Dosage: INJECT 40MG SUBCUTANEOUSLY EVERY 2 WEEKS AS DIRECTED.    ??THERAPY STOPPED:  ON HOLD?
     Route: 058
     Dates: start: 202306

REACTIONS (5)
  - Pharyngitis [None]
  - Urinary tract infection [None]
  - Kidney infection [None]
  - Arthralgia [None]
  - Therapy interrupted [None]
